FAERS Safety Report 4984896-0 (Version None)
Quarter: 2006Q2

REPORT INFORMATION
  Report Type: 
  Country: None (occurrence: None)
  Receive Date: 20060426
  Receipt Date: 20060426
  Transmission Date: 20061013
  Serious: Yes (Life-Threatening)
  Sender: FDA-Public Use
  Company Number: None

PATIENT
  Sex: Female

DRUGS (13)
  1. ALTEPLASE IV (100 MG VIAL) [Suspect]
     Indication: ISCHAEMIC STROKE
     Dosage: 7.2 MG BOLUS OVER MIN
     Route: 040
     Dates: start: 20050104, end: 20050104
  2. LISINOPRIL [Suspect]
     Indication: HYPERTENSION
     Dosage: 64.4 MG OVER 60 MINS
     Dates: start: 20050104
  3. FEO4 [Concomitant]
  4. MULTI-VITAMIN [Concomitant]
  5. PREVACID [Concomitant]
  6. CELEBREX [Concomitant]
  7. DOCUSATE NA [Concomitant]
  8. LASIC [Concomitant]
  9. PLENDIL [Concomitant]
  10. ACETAMINOPHEN [Concomitant]
  11. ASPIRIN [Concomitant]
  12. LABETALOL [Concomitant]
  13. PREMPRO [Concomitant]

REACTIONS (3)
  - ANGIONEUROTIC OEDEMA [None]
  - DYSPHAGIA [None]
  - SWOLLEN TONGUE [None]
